FAERS Safety Report 8491867-9 (Version None)
Quarter: 2012Q3

REPORT INFORMATION
  Report Type: 
  Country: None (occurrence: None)
  Receive Date: 20120706
  Receipt Date: 20110822
  Transmission Date: 20120928
  Serious: No
  Sender: FDA-Public Use
  Company Number: US-GLAXOSMITHKLINE-A0941871A

PATIENT
  Age: 93 Year
  Sex: Female

DRUGS (15)
  1. GLUCOPHAGE [Concomitant]
  2. LIPITOR [Concomitant]
  3. COZAAR [Concomitant]
  4. COD LIVER OIL [Concomitant]
  5. HERBAL MEDICATION [Concomitant]
  6. ASPIRIN [Concomitant]
  7. MULTIVITAMIN [Concomitant]
  8. COUMADIN [Concomitant]
  9. DILTIAZEM HYDROCHOLORIDE [Concomitant]
  10. FLOVENT [Suspect]
     Indication: ASTHMA
     Dosage: 1PUFF TWICE PER DAY
     Route: 055
     Dates: start: 20110527
  11. VITAMIN TAB [Concomitant]
  12. CALCIUM [Concomitant]
  13. KLOR-CON [Concomitant]
  14. GLUCOSAMINE [Concomitant]
  15. ADVAIR DISKUS 100/50 [Suspect]
     Indication: ASTHMA
     Dosage: 1PUFF TWICE PER DAY
     Route: 055
     Dates: start: 20110901

REACTIONS (1)
  - DYSPHONIA [None]
